FAERS Safety Report 9743194 (Version 1)
Quarter: 2013Q4

REPORT INFORMATION
  Report Type: Spontaneous
  Country: US (occurrence: US)
  Receive Date: 20131210
  Receipt Date: 20131210
  Transmission Date: 20140711
  Serious: No
  Sender: FDA-Public Use
  Company Number: US-GILEAD-2009-0024967

PATIENT
  Sex: Female
  Weight: 117.93 kg

DRUGS (16)
  1. LETAIRIS [Suspect]
     Indication: PULMONARY ARTERIAL HYPERTENSION
     Route: 048
     Dates: start: 20091001
  2. SPIRONOLACTONE [Concomitant]
  3. FUROSEMIDE [Concomitant]
  4. COREG [Concomitant]
  5. CRESTOR [Concomitant]
  6. RAMIPRIL [Concomitant]
  7. REVATIO [Concomitant]
  8. LYRICA [Concomitant]
  9. HUMALOG [Concomitant]
  10. HUMULIN L [Concomitant]
  11. METHAZOLAMIDE [Concomitant]
  12. SYNTHROID [Concomitant]
  13. ROPINIROLE [Concomitant]
  14. AMITRIPTYLINE [Concomitant]
  15. VITAMIN D [Concomitant]
  16. PILOCARPINE [Concomitant]

REACTIONS (1)
  - Flushing [Unknown]
